FAERS Safety Report 19866396 (Version 7)
Quarter: 2021Q4

REPORT INFORMATION
  Report Type: Report from Study
  Country: JP (occurrence: JP)
  Receive Date: 20210922
  Receipt Date: 20211201
  Transmission Date: 20220303
  Serious: Yes (Hospitalization, Other)
  Sender: FDA-Public Use
  Company Number: JP-BRISTOL-MYERS SQUIBB COMPANY-BMS-2021-095519

PATIENT
  Age: 79 Year
  Sex: Male
  Weight: 61.7 kg

DRUGS (7)
  1. NIVOLUMAB [Suspect]
     Active Substance: NIVOLUMAB
     Indication: Gastric cancer recurrent
     Dosage: 360 MILLIGRAM, Q3WK
     Route: 041
     Dates: start: 20210908
  2. ERIBULIN MESYLATE [Suspect]
     Active Substance: ERIBULIN MESYLATE
     Indication: Gastric cancer recurrent
     Dosage: 2.1 MG/M2 (3.53MG), Q3W
     Route: 042
     Dates: start: 20210908, end: 20210908
  3. ERIBULIN MESYLATE [Suspect]
     Active Substance: ERIBULIN MESYLATE
     Dosage: 1.7 MG/M2 (2.86MG), Q3W CYCLE 2, DAY 1
     Route: 042
     Dates: start: 20210929, end: 20210929
  4. HERBALS [Concomitant]
     Active Substance: HERBALS
     Indication: Constipation
     Dosage: 5 GRAM, Q8H
     Route: 048
     Dates: start: 20200617
  5. MAGNESIUM OXIDE [Concomitant]
     Active Substance: MAGNESIUM OXIDE
     Indication: Constipation
     Dosage: 660 MILLIGRAM, Q8H
     Route: 048
     Dates: start: 20200617
  6. MAGNESIUM OXIDE [Concomitant]
     Active Substance: MAGNESIUM OXIDE
     Dosage: 660 MG, PRN
     Route: 048
     Dates: start: 20211011
  7. NOVAMIN [Concomitant]
     Indication: Prophylaxis of nausea and vomiting
     Dosage: 5 MILLIGRAM, PRN
     Route: 048
     Dates: start: 20210908

REACTIONS (3)
  - Mucosal inflammation [Recovering/Resolving]
  - Decreased appetite [Not Recovered/Not Resolved]
  - Intestinal obstruction [Recovered/Resolved]

NARRATIVE: CASE EVENT DATE: 20210915
